FAERS Safety Report 22082889 (Version 1)
Quarter: 2023Q1

REPORT INFORMATION
  Report Type: Report from Study
  Country: CA (occurrence: CA)
  Receive Date: 20230310
  Receipt Date: 20230310
  Transmission Date: 20230417
  Serious: Yes (Other)
  Sender: FDA-Public Use
  Company Number: CA-HLS-202300190

PATIENT
  Age: 37 Year
  Sex: Male
  Weight: 94 kg

DRUGS (6)
  1. CLOZARIL [Suspect]
     Active Substance: CLOZAPINE
     Indication: Schizoaffective disorder
     Dosage: 25 MG INCREASING BY 25 MG DAILY TO 225 MG QHS
     Route: 048
     Dates: start: 20230112, end: 20230122
  2. CLOZARIL [Suspect]
     Active Substance: CLOZAPINE
     Indication: Product used for unknown indication
     Dosage: 25 MG INCREASING BY 25 MG DAILY TO 225 MG QHS
     Route: 048
     Dates: start: 20230112, end: 20230122
  3. CLOZARIL [Suspect]
     Active Substance: CLOZAPINE
     Indication: Schizoaffective disorder
     Dosage: UNKNOWN
     Route: 048
     Dates: start: 20230111, end: 20230122
  4. CLOZARIL [Suspect]
     Active Substance: CLOZAPINE
     Indication: Product used for unknown indication
     Dosage: UNKNOWN
     Route: 048
     Dates: start: 20230111, end: 20230122
  5. DIVALPROEX SODIUM [Concomitant]
     Active Substance: DIVALPROEX SODIUM
     Indication: Schizoaffective disorder bipolar type
     Dosage: 1500 MG DAILY QHS
     Route: 048
     Dates: start: 2013
  6. Paliperidone Trinza [Concomitant]
     Indication: Product used for unknown indication
     Dosage: 525MG EVERY 9 WEEKS. LAST DOSE EARLY DECEMBER 2022.
     Route: 065

REACTIONS (4)
  - Cardiomyopathy [Unknown]
  - Off label use [Unknown]
  - Pericarditis [Recovered/Resolved]
  - Ventricular hypokinesia [Unknown]

NARRATIVE: CASE EVENT DATE: 20230112
